FAERS Safety Report 13748229 (Version 1)
Quarter: 2017Q3

REPORT INFORMATION
  Report Type: Spontaneous
  Country: US (occurrence: US)
  Receive Date: 20170713
  Receipt Date: 20170713
  Transmission Date: 20171127
  Serious: No
  Sender: FDA-Public Use
  Company Number: US-009507513-1707USA000196

PATIENT
  Age: 60 Year
  Sex: Male

DRUGS (2)
  1. ZEPATIER [Suspect]
     Active Substance: ELBASVIR\GRAZOPREVIR
     Dosage: 100/50 MG
     Route: 048
     Dates: start: 20170616, end: 201706
  2. FLOMAX [Concomitant]
     Active Substance: TAMSULOSIN HYDROCHLORIDE

REACTIONS (7)
  - Malaise [Unknown]
  - White blood cell count increased [Unknown]
  - Dyspnoea [Not Recovered/Not Resolved]
  - Neutrophil count increased [Unknown]
  - Weight decreased [Unknown]
  - Pyrexia [Not Recovered/Not Resolved]
  - Dysuria [Recovered/Resolved]

NARRATIVE: CASE EVENT DATE: 201706
